FAERS Safety Report 14784666 (Version 2)
Quarter: 2018Q2

REPORT INFORMATION
  Report Type: Spontaneous
  Country: NZ (occurrence: NZ)
  Receive Date: 20180420
  Receipt Date: 20180422
  Transmission Date: 20180711
  Serious: Yes (Other)
  Sender: FDA-Public Use
  Company Number: NZ-APOTEX-2018AP011136

PATIENT

DRUGS (1)
  1. CIPROFLOXACIN. [Suspect]
     Active Substance: CIPROFLOXACIN
     Indication: CAMPYLOBACTER GASTROENTERITIS
     Dosage: UNK
     Route: 065
     Dates: start: 201201

REACTIONS (2)
  - Drug resistance [Unknown]
  - Drug ineffective [Unknown]
